FAERS Safety Report 4744855-X (Version None)
Quarter: 2005Q3

REPORT INFORMATION
  Report Type: 
  Country: None (occurrence: None)
  Receive Date: 20050815
  Receipt Date: 20050803
  Transmission Date: 20060218
  Serious: Yes (Death, Life-Threatening, Hospitalization)
  Sender: FDA-Public Use
  Company Number: FR-GLAXOSMITHKLINE-B0390154A

PATIENT
  Age: 53 Year
  Sex: Male
  Weight: 45 kg

DRUGS (17)
  1. ALKERAN [Suspect]
     Indication: NON-HODGKIN'S LYMPHOMA
     Route: 042
     Dates: start: 20050404, end: 20050404
  2. ARACYTINE [Suspect]
     Indication: NON-HODGKIN'S LYMPHOMA
     Dosage: 610MG PER DAY
     Route: 042
     Dates: start: 20050331, end: 20050403
  3. BICNU [Suspect]
     Indication: NON-HODGKIN'S LYMPHOMA
     Route: 042
     Dates: start: 20050330, end: 20050330
  4. ETOPOSIDE [Suspect]
     Indication: NON-HODGKIN'S LYMPHOMA
     Dosage: 610MG PER DAY
     Route: 042
     Dates: start: 20050331, end: 20050403
  5. CIFLOX [Suspect]
     Dosage: 500MG TWICE PER DAY
     Route: 048
     Dates: start: 20050416
  6. VFEND [Suspect]
     Indication: ASPERGILLOSIS
     Dosage: 200MG PER DAY
     Route: 048
     Dates: start: 20050416
  7. MABTHERA [Concomitant]
     Indication: NON-HODGKIN'S LYMPHOMA
     Route: 065
     Dates: start: 20041001, end: 20050101
  8. ENDOXAN [Concomitant]
     Indication: NON-HODGKIN'S LYMPHOMA
     Route: 065
     Dates: start: 20041001, end: 20050101
  9. DOXORUBICIN HCL [Concomitant]
     Indication: NON-HODGKIN'S LYMPHOMA
     Route: 065
     Dates: start: 20041001, end: 20050101
  10. VINCRISTINE [Concomitant]
     Indication: NON-HODGKIN'S LYMPHOMA
     Route: 065
     Dates: start: 20041001, end: 20050101
  11. PREDNISONE [Concomitant]
     Indication: NON-HODGKIN'S LYMPHOMA
     Dates: start: 20041001, end: 20050101
  12. TIENAM [Concomitant]
     Route: 065
     Dates: start: 20050401
  13. SKENAN [Concomitant]
     Indication: DRUG USE FOR UNKNOWN INDICATION
     Route: 065
  14. MOTILIUM [Concomitant]
     Indication: DRUG USE FOR UNKNOWN INDICATION
     Route: 065
  15. LOVENOX [Concomitant]
     Indication: DRUG USE FOR UNKNOWN INDICATION
     Route: 065
  16. BONE MARROW TRANSPLANT [Concomitant]
     Indication: NON-HODGKIN'S LYMPHOMA
     Dates: start: 20050401
  17. GRANOCYTE [Concomitant]
     Indication: BONE MARROW TRANSPLANT
     Route: 065
     Dates: start: 20050401

REACTIONS (9)
  - ACUTE RESPIRATORY DISTRESS SYNDROME [None]
  - ACUTE RESPIRATORY FAILURE [None]
  - CHEST X-RAY ABNORMAL [None]
  - HYPOXIA [None]
  - INTERSTITIAL LUNG DISEASE [None]
  - PNEUMONIA [None]
  - PULMONARY ALVEOLAR HAEMORRHAGE [None]
  - PYREXIA [None]
  - SEPSIS [None]
